FAERS Safety Report 4791467-8 (Version None)
Quarter: 2005Q4

REPORT INFORMATION
  Report Type: 
  Country: None (occurrence: None)
  Receive Date: 20051007
  Receipt Date: 20040817
  Transmission Date: 20060501
  Serious: No
  Sender: FDA-Public Use
  Company Number: US-BRISTOL-MYERS SQUIBB COMPANY-12674867

PATIENT
  Sex: Male

DRUGS (1)
  1. AVAPRO [Suspect]
     Indication: HYPERTENSION
     Dosage: DOSING FOR 1ST 2 YEARS WAS 150 MG, INCREASED TO 300 MG ON 13-AUG-2004
     Route: 048
     Dates: start: 20020101

REACTIONS (1)
  - BLOOD PRESSURE INCREASED [None]
